FAERS Safety Report 12336279 (Version 1)
Quarter: 2016Q2

REPORT INFORMATION
  Report Type: Spontaneous
  Country: US (occurrence: None)
  Receive Date: 20160504
  Receipt Date: 20160504
  Transmission Date: 20160815
  Serious: Yes (Other)
  Sender: FDA-Public Use
  Company Number: None

PATIENT
  Age: 62 Year
  Sex: Female
  Weight: 70.31 kg

DRUGS (3)
  1. NEUTROGENA AGE SHIELD FACE OIL FREE SUNSCREEN BROAD SPECTRUM SPF110 [Suspect]
     Active Substance: AVOBENZONE\HOMOSALATE\OCTISALATE\OCTOCRYLENE\OXYBENZONE
     Indication: THERAPEUTIC SKIN CARE TOPICAL
     Dosage: 3 OUNCE(S) IN THE MORNING APPLIED TO A SURFACE, USUALLY THE SKIN
     Route: 061
     Dates: start: 20160502, end: 20160502
  2. NEUTROGENA AGE SHIELD FACE OIL FREE SUNSCREEN BROAD SPECTRUM SPF110 [Suspect]
     Active Substance: AVOBENZONE\HOMOSALATE\OCTISALATE\OCTOCRYLENE\OXYBENZONE
     Indication: PHOTOSENSITIVITY REACTION
     Dosage: 3 OUNCE(S) IN THE MORNING APPLIED TO A SURFACE, USUALLY THE SKIN
     Route: 061
     Dates: start: 20160502, end: 20160502
  3. NEUTROGENA AGE SHIELD FACE OIL FREE SUNSCREEN BROAD SPECTRUM SPF110 [Suspect]
     Active Substance: AVOBENZONE\HOMOSALATE\OCTISALATE\OCTOCRYLENE\OXYBENZONE
     Indication: PROPHYLAXIS
     Dosage: 3 OUNCE(S) IN THE MORNING APPLIED TO A SURFACE, USUALLY THE SKIN
     Route: 061
     Dates: start: 20160502, end: 20160502

REACTIONS (5)
  - Encephalitis [None]
  - Hypersomnia [None]
  - Eye irritation [None]
  - Urticaria [None]
  - Hypersensitivity [None]

NARRATIVE: CASE EVENT DATE: 20160502
